FAERS Safety Report 5526604-0 (Version None)
Quarter: 2007Q4

REPORT INFORMATION
  Report Type: 
  Country: None (occurrence: None)
  Receive Date: 20071127
  Receipt Date: 20071120
  Transmission Date: 20080405
  Serious: Yes (Disabling)
  Sender: FDA-Public Use
  Company Number: PHBS2007ZA17217

PATIENT
  Age: 49 Year
  Sex: Female
  Weight: 65 kg

DRUGS (5)
  1. ZOMETA [Suspect]
     Indication: METASTASES TO BONE
     Dates: start: 20071116
  2. ZOMETA [Suspect]
     Dosage: 4 MG, QMO
     Route: 042
     Dates: start: 20050422
  3. TAXOTERE [Concomitant]
     Dates: start: 20050422, end: 20050808
  4. XELODA [Concomitant]
     Dates: start: 20050422, end: 20050808
  5. ARIMIDEX [Concomitant]
     Dates: start: 20050828

REACTIONS (2)
  - OSTEONECROSIS [None]
  - TOOTH LOSS [None]
